FAERS Safety Report 7145357-6 (Version None)
Quarter: 2010Q4

REPORT INFORMATION
  Report Type: 
  Country: None (occurrence: None)
  Receive Date: 20101122
  Receipt Date: 20101115
  Transmission Date: 20110411
  Serious: Yes (Death)
  Sender: FDA-Public Use
  Company Number: 2010SP056884

PATIENT
  Age: 59 Year
  Sex: Male
  Weight: 100 kg

DRUGS (4)
  1. INTEGRILIN [Suspect]
     Indication: ANGIOPLASTY
     Dosage: IV
     Route: 042
     Dates: start: 20101011, end: 20101011
  2. LOVENOX [Concomitant]
  3. KARDEGIC [Concomitant]
  4. PLAVIX [Concomitant]

REACTIONS (1)
  - CARDIAC TAMPONADE [None]
